FAERS Safety Report 13741947 (Version 1)
Quarter: 2017Q3

REPORT INFORMATION
  Report Type: Spontaneous
  Country: US (occurrence: US)
  Receive Date: 20170711
  Receipt Date: 20170711
  Transmission Date: 20171127
  Serious: Yes (Hospitalization)
  Sender: FDA-Public Use
  Company Number: US-B.I. PHARMACEUTICALS,INC./RIDGEFIELD-2017-BI-037818

PATIENT
  Age: 58 Year
  Sex: Female

DRUGS (3)
  1. BREO ELLIPTA [Concomitant]
     Active Substance: FLUTICASONE FUROATE\VILANTEROL TRIFENATATE
     Indication: CHRONIC OBSTRUCTIVE PULMONARY DISEASE
     Dosage: UNIT DOSE/DAILY DOSE: 200 MG, ONE PUFF A DAY;
     Route: 055
  2. COMBIVENT [Suspect]
     Active Substance: ALBUTEROL SULFATE\IPRATROPIUM BROMIDE
     Indication: CHRONIC OBSTRUCTIVE PULMONARY DISEASE
     Dosage: FORM STRENGTH: 20 MCG / 100 MCG; UNIT DOSE/DAILY DOSE: 160 MCG / 800 MCG; ADMINISTRATION CORRECT? NO
     Route: 055
     Dates: start: 2011
  3. XANAX [Concomitant]
     Active Substance: ALPRAZOLAM
     Indication: ANXIETY
     Dosage: DAILY DOSE: ONE OR TWO TABLETS 4X/DAY AS NEEDED
     Route: 048

REACTIONS (5)
  - Oxygen saturation decreased [Recovered/Resolved]
  - Loss of consciousness [Recovered/Resolved]
  - Drug ineffective [Unknown]
  - Incorrect dosage administered [Unknown]
  - Respiratory rate decreased [Not Recovered/Not Resolved]

NARRATIVE: CASE EVENT DATE: 2011
